FAERS Safety Report 5655353-3 (Version None)
Quarter: 2008Q1

REPORT INFORMATION
  Report Type: 
  Country: None (occurrence: None)
  Receive Date: 20080307
  Receipt Date: 20080303
  Transmission Date: 20080703
  Serious: Yes (Death)
  Sender: FDA-Public Use
  Company Number: US-GENENTECH-256668

PATIENT
  Age: 47 Year
  Sex: Male
  Weight: 116.55 kg

DRUGS (2)
  1. ACTIVASE [Suspect]
     Indication: ISCHAEMIC STROKE
     Dosage: 90 MG, SINGLE
     Route: 042
  2. ACTIVASE [Suspect]
     Dosage: 0.9 MG/KG, SINGLE
     Route: 042

REACTIONS (4)
  - DISEASE RECURRENCE [None]
  - DRUG INEFFECTIVE [None]
  - HAEMORRHAGE INTRACRANIAL [None]
  - ISCHAEMIC STROKE [None]
